FAERS Safety Report 6262975-8 (Version None)
Quarter: 2009Q3

REPORT INFORMATION
  Report Type: 
  Country: None (occurrence: None)
  Receive Date: 20090710
  Receipt Date: 20080111
  Transmission Date: 20100115
  Serious: Yes (Death, Other)
  Sender: FDA-Public Use
  Company Number: US-ASTRAZENECA-2007UW12870

PATIENT
  Age: 19443 Day
  Sex: Male
  Weight: 84.4 kg

DRUGS (20)
  1. SEROQUEL [Suspect]
     Indication: SLEEP DISORDER
     Route: 048
     Dates: start: 20021201, end: 20060201
  2. SEROQUEL [Suspect]
     Dosage: 25 MG - 300 MG
     Route: 048
     Dates: start: 20030212
  3. RISPERDAL [Concomitant]
     Dates: end: 20050101
  4. ADDERALL 10 [Concomitant]
  5. ATIVAN [Concomitant]
  6. PREDNISONE [Concomitant]
  7. LEVAQUIN [Concomitant]
  8. DEXAMETHASONE [Concomitant]
  9. METHADONE [Concomitant]
  10. LOVENOX [Concomitant]
  11. COLACE [Concomitant]
  12. ELAVIL [Concomitant]
  13. SOLU-MEDROL [Concomitant]
  14. TORADOL [Concomitant]
  15. FLEXERIL [Concomitant]
  16. VICODIN [Concomitant]
  17. MORPHINE SULFATE [Concomitant]
  18. PROTONIX [Concomitant]
  19. MUCINEX [Concomitant]
  20. PERCOCET [Concomitant]

REACTIONS (8)
  - CHRONIC OBSTRUCTIVE PULMONARY DISEASE [None]
  - DEATH [None]
  - LUNG NEOPLASM MALIGNANT [None]
  - PANCREATITIS [None]
  - PLEURAL EFFUSION [None]
  - PNEUMONIA STREPTOCOCCAL [None]
  - SEPSIS [None]
  - TYPE 1 DIABETES MELLITUS [None]
